FAERS Safety Report 4978121-4 (Version None)
Quarter: 2006Q2

REPORT INFORMATION
  Report Type: 
  Country: None (occurrence: None)
  Receive Date: 20060420
  Receipt Date: 20060321
  Transmission Date: 20061013
  Serious: Yes (Death, Hospitalization)
  Sender: FDA-Public Use
  Company Number: BE-AVENTIS-200612883GDDC

PATIENT
  Age: 65 Year
  Sex: Female

DRUGS (6)
  1. TAXOTERE [Suspect]
     Indication: BREAST CANCER
     Route: 042
     Dates: start: 20060314, end: 20060314
  2. L-THYROXINE [Concomitant]
     Indication: HYPOTHYROIDISM
     Route: 048
     Dates: start: 20000101
  3. ALLOPURINOL [Concomitant]
     Indication: HYPERURICAEMIA
     Route: 048
     Dates: start: 19980101
  4. DAFLON [Concomitant]
     Indication: VENOUS INSUFFICIENCY
     Route: 048
  5. EMCORETIC [Concomitant]
     Indication: HYPERTENSION
     Dosage: DOSE: 1 TABLET DAILY
     Route: 048
     Dates: start: 20000101
  6. CYCLOPHOSPHAMIDE [Concomitant]
     Dates: start: 20060314, end: 20060314

REACTIONS (7)
  - ACIDOSIS [None]
  - FAT NECROSIS [None]
  - GASTROINTESTINAL NECROSIS [None]
  - HYPOVOLAEMIC SHOCK [None]
  - INTESTINAL INFARCTION [None]
  - RENAL FAILURE [None]
  - RESPIRATORY DISTRESS [None]
